FAERS Safety Report 17743682 (Version 1)
Quarter: 2020Q2

REPORT INFORMATION
  Report Type: Spontaneous
  Country: FR (occurrence: FR)
  Receive Date: 20200505
  Receipt Date: 20200505
  Transmission Date: 20200714
  Serious: Yes (Other)
  Sender: FDA-Public Use
  Company Number: FR-SA-2020SA115646

PATIENT
  Age: 1 Year
  Sex: Male
  Weight: 13 kg

DRUGS (2)
  1. RIFADINE [Suspect]
     Active Substance: RIFAMPIN
     Indication: LATENT TUBERCULOSIS
     Dosage: 200 MG, QD
     Route: 048
     Dates: start: 20190722, end: 20191022
  2. ISONIAZID. [Suspect]
     Active Substance: ISONIAZID
     Indication: LATENT TUBERCULOSIS
     Dosage: 130 MG, QD
     Route: 048
     Dates: start: 20190722, end: 20191022

REACTIONS (1)
  - Neutropenia [Recovered/Resolved]

NARRATIVE: CASE EVENT DATE: 20190903
